FAERS Safety Report 8799094 (Version 1)
Quarter: 2012Q4

REPORT INFORMATION
  Report Type: 
  Country: US (occurrence: US)
  Receive Date: 20120920
  Receipt Date: 20120920
  Transmission Date: 20130627
  Serious: Yes (Other)
  Sender: FDA-Public Use
  Company Number: US-ASTRAZENECA-2011SE64988

PATIENT

DRUGS (37)
  1. LISINOPRIL [Suspect]
     Route: 048
  2. CRESTOR [Concomitant]
     Indication: BLOOD CHOLESTEROL INCREASED
     Route: 048
  3. NEXIUM [Concomitant]
     Indication: GASTROOESOPHAGEAL REFLUX DISEASE
     Route: 048
  4. BABY ASPIRIN [Concomitant]
     Indication: CORONARY ARTERY DISEASE
  5. BABY ASPIRIN [Concomitant]
     Indication: CEREBROVASCULAR ACCIDENT
  6. BYSTOLIC [Concomitant]
     Indication: HYPERTENSION
  7. CALCIUM CITRATE D [Concomitant]
     Indication: OSTEOPENIA
  8. DIFLUCAN [Concomitant]
     Indication: INFECTION PROPHYLAXIS
  9. FERROUS SULFATE [Concomitant]
     Indication: MUSCLE SPASMS
  10. FISH OIL [Concomitant]
     Indication: BLOOD TRIGLYCERIDES INCREASED
  11. FLONASE [Concomitant]
     Indication: MULTIPLE ALLERGIES
     Dosage: 50 MCG, 2 SPRAYS AM IN EACH NOSTRIL
     Route: 045
  12. FOLTX [Concomitant]
     Indication: VITAMIN B COMPLEX DEFICIENCY
     Dosage: 1 TABLET AT BEDTIME
  13. FOSAMAX [Concomitant]
     Indication: OSTEOPOROSIS
  14. ISOSORBIDE [Concomitant]
     Indication: HYPERTENSION
  15. LOSARTAN POTASSIUM [Concomitant]
     Indication: HYPERTENSION
  16. LOSARTAN POTASSIUM [Concomitant]
     Indication: RENAL DISORDER
  17. LOSARTAN POTASSIUM [Concomitant]
     Indication: CEREBROVASCULAR ACCIDENT PROPHYLAXIS
  18. LUMIGAN [Concomitant]
     Indication: GLAUCOMA
     Dosage: 1 DROP IN EACH EYE AT BEDTIME
     Route: 047
  19. MIRAPEX [Concomitant]
     Indication: RESTLESS LEGS SYNDROME
  20. MIRAPEX [Concomitant]
     Indication: MUSCLE SPASMS
  21. PLAVIX [Concomitant]
     Indication: CORONARY ARTERY DISEASE
  22. PLAVIX [Concomitant]
     Indication: CEREBROVASCULAR ACCIDENT
  23. SAVELLA [Concomitant]
     Indication: DEPRESSION
     Dosage: 50 MG - 1 AM AND 1 AT BEDTIME
  24. SAVELLA [Concomitant]
     Indication: FIBROMYALGIA
     Dosage: 50 MG - 1 AM AND 1 AT BEDTIME
  25. TRAZODONE [Concomitant]
     Indication: SLEEP APNOEA SYNDROME
  26. TRICOR [Concomitant]
     Indication: BLOOD TRIGLYCERIDES INCREASED
  27. U 500 HUMILIN REGULAR INSULIN [Concomitant]
     Indication: TYPE 2 DIABETES MELLITUS
     Dosage: VIA INSULIN PUMP
  28. CATAPRES [Concomitant]
     Indication: DIARRHOEA
     Dosage: ONE PATCH OF 7 D
  29. FLEXERIL [Concomitant]
     Indication: BACK PAIN
  30. FLEXERIL [Concomitant]
     Indication: PAIN IN EXTREMITY
  31. ALBUTEROL [Concomitant]
     Indication: ASTHMA
     Dosage: 90 MCG, 1 PUFF AS NEEDED
     Route: 055
  32. HYDROXINE HCL [Concomitant]
     Indication: PRURITUS
  33. NITROGLYCERIN [Concomitant]
     Indication: CHEST PAIN
     Route: 060
  34. NORCO [Concomitant]
     Indication: PAIN
     Dosage: 10/325 MG- EVERY 4 HOURS
  35. PHENERGAN [Concomitant]
     Indication: NAUSEA
  36. SKELAXIN [Concomitant]
     Indication: MYALGIA
  37. XANAX [Concomitant]
     Indication: ANXIETY

REACTIONS (2)
  - Angioedema [Unknown]
  - Drug hypersensitivity [Unknown]
